FAERS Safety Report 5458651-1 (Version None)
Quarter: 2007Q3

REPORT INFORMATION
  Report Type: 
  Country: None (occurrence: None)
  Receive Date: 20070919
  Receipt Date: 20070911
  Transmission Date: 20080115
  Serious: Yes (Hospitalization)
  Sender: FDA-Public Use
  Company Number: HQWYE338510AUG06

PATIENT
  Age: 44 Year
  Sex: Female

DRUGS (7)
  1. EUPANTOL [Suspect]
     Indication: ARTHRITIS
     Route: 048
     Dates: start: 20060415, end: 20060708
  2. EUPANTOL [Suspect]
     Indication: ARTHROPATHY
  3. TOPALGIC [Suspect]
     Indication: ARTHRITIS
     Route: 048
     Dates: start: 20060415, end: 20060708
  4. TOPALGIC [Suspect]
     Indication: ARTHROPATHY
  5. COAPROVEL [Suspect]
     Indication: ESSENTIAL HYPERTENSION
     Route: 048
     Dates: start: 20050101, end: 20060708
  6. INDOCIN [Suspect]
     Indication: ARTHRITIS
     Route: 048
     Dates: start: 20060415, end: 20060708
  7. INDOCIN [Suspect]
     Indication: ARTHROPATHY

REACTIONS (6)
  - ANGIOEDEMA [None]
  - CYTOLYTIC HEPATITIS [None]
  - DRUG HYPERSENSITIVITY [None]
  - EOSINOPHILIA [None]
  - HEPATITIS CHOLESTATIC [None]
  - HYPOTENSION [None]
